FAERS Safety Report 21743696 (Version 1)
Quarter: 2022Q4

REPORT INFORMATION
  Report Type: Report from Study
  Country: US (occurrence: US)
  Receive Date: 20221217
  Receipt Date: 20221217
  Transmission Date: 20230113
  Serious: No
  Sender: FDA-Public Use
  Company Number: US-ABBVIE-4201716

PATIENT
  Sex: Female

DRUGS (1)
  1. HUMIRA [Suspect]
     Active Substance: ADALIMUMAB
     Indication: Hidradenitis
     Dosage: CITRATE FREE, FORM STRENGTH 40 MG
     Route: 058

REACTIONS (5)
  - Pruritus [Unknown]
  - Staphylococcal infection [Recovering/Resolving]
  - Rash [Recovering/Resolving]
  - Adverse drug reaction [Unknown]
  - Skin lesion [Unknown]
